FAERS Safety Report 13794361 (Version 4)
Quarter: 2017Q3

REPORT INFORMATION
  Report Type: Spontaneous
  Country: US (occurrence: US)
  Receive Date: 20170726
  Receipt Date: 20170908
  Transmission Date: 20171127
  Serious: No
  Sender: FDA-Public Use
  Company Number: US-PFIZER INC-2017321763

PATIENT
  Age: 73 Year
  Sex: Female
  Weight: 75.74 kg

DRUGS (1)
  1. CRIZOTINIB [Suspect]
     Active Substance: CRIZOTINIB
     Indication: NEUROENDOCRINE CARCINOMA
     Dosage: UNK
     Dates: start: 201512

REACTIONS (7)
  - Visual impairment [Unknown]
  - Musculoskeletal stiffness [Unknown]
  - Headache [Unknown]
  - Product use in unapproved indication [Unknown]
  - Diarrhoea [Unknown]
  - Pain [Unknown]
  - Neoplasm progression [Unknown]

NARRATIVE: CASE EVENT DATE: 201512
